FAERS Safety Report 9612521 (Version 3)
Quarter: 2013Q4

REPORT INFORMATION
  Report Type: Report from Study
  Country: IL (occurrence: IL)
  Receive Date: 20131010
  Receipt Date: 20131205
  Transmission Date: 20140711
  Serious: Yes (Hospitalization)
  Sender: FDA-Public Use
  Company Number: IL-ROCHE-1285672

PATIENT
  Sex: Male

DRUGS (10)
  1. TRASTUZUMAB [Suspect]
     Indication: METASTATIC GASTRIC CANCER
     Dosage: LOADING DOSE
     Route: 065
  2. TRASTUZUMAB [Suspect]
     Dosage: MAINTENACE DOSE
     Route: 065
  3. DOCETAXEL [Concomitant]
     Indication: GASTROOESOPHAGEAL CANCER
  4. CISPLATIN [Concomitant]
     Indication: GASTROOESOPHAGEAL CANCER
  5. CAPECITABINE [Concomitant]
     Indication: GASTROOESOPHAGEAL CANCER
  6. BEVACIZUMAB [Concomitant]
     Indication: GASTROOESOPHAGEAL CANCER
  7. FOLINIC ACID [Concomitant]
  8. FLUOROURACIL [Concomitant]
  9. IRINOTECAN HYDROCHLORIDE [Concomitant]
  10. EPIRUBICIN [Concomitant]

REACTIONS (3)
  - Disease progression [Unknown]
  - Dyspnoea [Unknown]
  - Pneumonitis [Recovered/Resolved]
